FAERS Safety Report 7480457-2 (Version None)
Quarter: 2011Q2

REPORT INFORMATION
  Report Type: 
  Country: None (occurrence: None)
  Receive Date: 20110516
  Receipt Date: 20110503
  Transmission Date: 20111010
  Serious: Yes (Hospitalization)
  Sender: FDA-Public Use
  Company Number: JP-ELI_LILLY_AND_COMPANY-JP201105003600

PATIENT
  Age: 75 Year
  Sex: Female

DRUGS (1)
  1. FORTEO [Suspect]
     Dosage: UNK
     Route: 058
     Dates: start: 20110215, end: 20110427

REACTIONS (4)
  - HOSPITALISATION [None]
  - MALAISE [None]
  - BUCCAL MUCOSAL ROUGHENING [None]
  - BLOOD PRESSURE DECREASED [None]
